FAERS Safety Report 20810875 (Version 2)
Quarter: 2022Q4

REPORT INFORMATION
  Report Type: Spontaneous
  Country: US (occurrence: US)
  Receive Date: 20220510
  Receipt Date: 20221026
  Transmission Date: 20230113
  Serious: No
  Sender: FDA-Public Use
  Company Number: US-PFIZER INC-2020379724

PATIENT
  Age: 75 Year
  Sex: Female

DRUGS (2)
  1. IBRANCE [Suspect]
     Active Substance: PALBOCICLIB
     Indication: Breast cancer metastatic
     Dosage: 125 MG, 1X/DAY
     Route: 048
  2. IBRANCE [Suspect]
     Active Substance: PALBOCICLIB
     Dosage: 75 MG

REACTIONS (7)
  - Inappropriate schedule of product administration [Unknown]
  - Wrong strength [Unknown]
  - Product dose omission issue [Unknown]
  - Blood iron decreased [Unknown]
  - Fatigue [Unknown]
  - Asthenia [Unknown]
  - Malaise [Unknown]
